FAERS Safety Report 25018286 (Version 2)
Quarter: 2025Q1

REPORT INFORMATION
  Report Type: Spontaneous
  Country: CN (occurrence: CN)
  Receive Date: 20250227
  Receipt Date: 20250303
  Transmission Date: 20250408
  Serious: Yes (Hospitalization, Other)
  Sender: PFIZER
  Company Number: CN-PFIZER INC-PV202500022658

PATIENT
  Age: 65 Year
  Sex: Female
  Weight: 43.8 kg

DRUGS (2)
  1. AROMASIN [Suspect]
     Active Substance: EXEMESTANE
     Indication: Chemotherapy
     Dosage: 25 MG, 1X/DAY
     Route: 048
     Dates: start: 20250110, end: 20250114
  2. ABEMACICLIB [Suspect]
     Active Substance: ABEMACICLIB
     Indication: Chemotherapy
     Dosage: 150 MG, 2X/DAY
     Route: 048
     Dates: start: 20250110, end: 20250114

REACTIONS (1)
  - Myelosuppression [Recovering/Resolving]

NARRATIVE: CASE EVENT DATE: 20250111
